FAERS Safety Report 22349257 (Version 1)
Quarter: 2023Q2

REPORT INFORMATION
  Report Type: Other
  Country: JP (occurrence: JP)
  Receive Date: 20230522
  Receipt Date: 20230522
  Transmission Date: 20230721
  Serious: Yes (Death, Hospitalization)
  Sender: FDA-Public Use
  Company Number: JP-CHUGAI-2023009453

PATIENT
  Age: 73 Year
  Sex: Male
  Weight: 50.25 kg

DRUGS (1)
  1. AVASTIN [Suspect]
     Active Substance: BEVACIZUMAB
     Indication: Malignant glioma
     Dosage: 10 MILLIGRAM/KILOGRAM, ONCE/2WEEKS
     Route: 041
     Dates: start: 20191025, end: 20210624

REACTIONS (3)
  - Cerebral infarction [Recovered/Resolved]
  - Cerebral infarction [Recovering/Resolving]
  - Glioblastoma [Fatal]

NARRATIVE: CASE EVENT DATE: 20201016
